FAERS Safety Report 8792786 (Version 2)
Quarter: 2012Q4

REPORT INFORMATION
  Report Type: Report from Study
  Country: JP (occurrence: JP)
  Receive Date: 20120918
  Receipt Date: 20120927
  Transmission Date: 20130627
  Serious: Yes (Hospitalization)
  Sender: FDA-Public Use
  Company Number: JP-VERTEX PHARMACEUTICAL INC.-2012-021222

PATIENT
  Age: 66 Year
  Sex: Female

DRUGS (10)
  1. VX-950 [Suspect]
     Indication: HEPATITIS C
     Dosage: 2250 mg, qd
     Route: 048
     Dates: start: 20120905, end: 20120908
  2. PREDONINE [Suspect]
     Indication: ADVERSE EVENT
     Dosage: 1 g, qd
     Route: 042
     Dates: start: 20120908, end: 20120908
  3. PEGINTRON                          /01543001/ [Concomitant]
     Dosage: 1.5 UNK, UNK
     Route: 058
     Dates: start: 20120905
  4. REBETOL [Concomitant]
     Dosage: 400 mg, qd
     Route: 048
     Dates: start: 20120905, end: 20120908
  5. BAYASPIRIN [Concomitant]
     Dosage: 100 mg, qd
     Route: 048
  6. BLOPRESS [Concomitant]
     Dosage: 24 mg, qd
     Route: 048
  7. LOCHOL                             /01224502/ [Concomitant]
     Dosage: 20 mg, qd
     Route: 048
  8. ADALAT - CR [Concomitant]
     Dosage: 120 mg, qd
     Route: 048
  9. MAINTATE [Concomitant]
     Dosage: 5 mg, qd
     Route: 048
  10. GASTER [Concomitant]
     Route: 048

REACTIONS (3)
  - Renal failure [Recovered/Resolved]
  - Blood pressure decreased [Recovered/Resolved]
  - Amylase increased [Recovered/Resolved]
